FAERS Safety Report 18795659 (Version 2)
Quarter: 2021Q1

REPORT INFORMATION
  Report Type: Spontaneous
  Country: US (occurrence: US)
  Receive Date: 20210127
  Receipt Date: 20210202
  Transmission Date: 20210419
  Serious: Yes (Other)
  Sender: FDA-Public Use
  Company Number: NVSC2021US013215

PATIENT
  Sex: Male
  Weight: 1.37 kg

DRUGS (17)
  1. PROMACTA [Suspect]
     Active Substance: ELTROMBOPAG OLAMINE
     Indication: FOETAL EXPOSURE DURING PREGNANCY
     Dosage: MATERNAL DOSE:25 MG, QD INTO 5 DAYS
     Route: 064
  2. CARBOPROST TROMETHAMINE [Suspect]
     Active Substance: CARBOPROST TROMETHAMINE
     Indication: FOETAL EXPOSURE DURING PREGNANCY
     Dosage: MATERNAL DOSE:UNK
     Route: 064
  3. PREDNISONE. [Suspect]
     Active Substance: PREDNISONE
     Indication: FOETAL EXPOSURE DURING PREGNANCY
     Dosage: MATERNAL DOSE: (60 MG DAILY)
     Route: 064
  4. MAGNESIUM OXIDE. [Concomitant]
     Active Substance: MAGNESIUM OXIDE
     Indication: FOETAL EXPOSURE DURING PREGNANCY
     Dosage: MOTHER DOSE:400 MG Q10AM
     Route: 064
  5. HYDROMORPHONE [Concomitant]
     Active Substance: HYDROMORPHONE
     Indication: FOETAL EXPOSURE DURING PREGNANCY
     Dosage: MOTHER DOSE:0.25 MG IV PUSH Q6HPRN
     Route: 064
  6. FERREX 150 FORTE PLUS [Concomitant]
     Active Substance: CALCIUM ASCORBATE\CALCIUM THREONATE\CYANOCOBALAMIN\FOLIC ACID\IRON\SUCCINIC ACID
     Indication: FOETAL EXPOSURE DURING PREGNANCY
     Dosage: MOTHER DOSE: UNK (Q10AM)
     Route: 064
  7. NACL [Concomitant]
     Active Substance: SODIUM CHLORIDE
     Indication: FOETAL EXPOSURE DURING PREGNANCY
     Dosage: MOTHER DOSE: 540ML
     Route: 064
  8. METHYLERGONOVINE [Suspect]
     Active Substance: METHYLERGONOVINE
     Indication: FOETAL EXPOSURE DURING PREGNANCY
     Dosage: MATERNAL DOSE:UNK
     Route: 064
  9. PREDNISONE. [Suspect]
     Active Substance: PREDNISONE
     Dosage: MATERNAL DOSE: (40 MG DAILY
     Route: 064
  10. BUTALBITAL, ACETAMINOPHEN, AND CAFFEINE [Concomitant]
     Active Substance: ACETAMINOPHEN\BUTALBITAL\CAFFEINE
     Indication: FOETAL EXPOSURE DURING PREGNANCY
     Dosage: MOTHER DOSE: Q8HPRN
     Route: 064
  11. TRANEXAMIC ACID. [Suspect]
     Active Substance: TRANEXAMIC ACID
     Indication: FOETAL EXPOSURE DURING PREGNANCY
     Dosage: MATERNAL DOSE:UNK
     Route: 064
  12. RITUXIMAB. [Concomitant]
     Active Substance: RITUXIMAB
     Indication: FOETAL EXPOSURE DURING PREGNANCY
     Dosage: MOTHER DOSE: 600 MG IV, CHEMO
     Route: 064
  13. DEXAMETHASONE. [Suspect]
     Active Substance: DEXAMETHASONE
     Indication: FOETAL EXPOSURE DURING PREGNANCY
     Dosage: MATERNAL DOSE:UNK
     Route: 064
  14. PROMACTA [Suspect]
     Active Substance: ELTROMBOPAG OLAMINE
     Dosage: MATERNAL DOSE:50 MG, QD INTO 2 DAYS (DOSE WAS INCREASED)
     Route: 064
  15. LANOXIN [Suspect]
     Active Substance: DIGOXIN
     Indication: FOETAL EXPOSURE DURING PREGNANCY
     Dosage: MATERNAL DOSE: 500 MCG, (1 DAY)
     Route: 064
  16. LANOXIN [Suspect]
     Active Substance: DIGOXIN
     Dosage: MATERNAL DOSE:250 MCG EVERY 6 HOURS FOR 2 DOSES
     Route: 064
  17. LANOXIN [Suspect]
     Active Substance: DIGOXIN
     Dosage: MATERNAL DOSE: CONTINUED AT 125 MCG EVERY 12 HOURS FOR ONE WEEK.
     Route: 064

REACTIONS (5)
  - Tachycardia foetal [Recovered/Resolved]
  - Atrial flutter [Unknown]
  - Low birth weight baby [Unknown]
  - Foetal exposure during pregnancy [Unknown]
  - Premature baby [Unknown]
